FAERS Safety Report 7295494-0 (Version None)
Quarter: 2011Q1

REPORT INFORMATION
  Report Type: 
  Country: None (occurrence: None)
  Receive Date: 20110216
  Receipt Date: 20101130
  Transmission Date: 20110831
  Serious: No
  Sender: FDA-Public Use
  Company Number: US-ABBOTT-10P-163-0689033-00

PATIENT
  Sex: Male
  Weight: 74.456 kg

DRUGS (8)
  1. SIMCOR [Suspect]
     Indication: DYSLIPIDAEMIA
     Route: 048
     Dates: start: 20101118
  2. ASPIRIN [Concomitant]
     Route: 048
     Dates: start: 20101118
  3. ASPIRIN [Concomitant]
  4. SIMCOR [Suspect]
     Indication: DYSLIPIDAEMIA
     Dosage: 500/20 MG
     Route: 048
     Dates: start: 20091101, end: 20101116
  5. SIMCOR [Suspect]
     Route: 048
  6. ASPIRIN [Concomitant]
     Indication: FLUSHING
     Route: 048
     Dates: end: 20101101
  7. ASPIRIN [Concomitant]
     Indication: PROPHYLAXIS
  8. RANITIDINE [Concomitant]
     Indication: GASTROOESOPHAGEAL REFLUX DISEASE
     Route: 048

REACTIONS (6)
  - PRURITUS [None]
  - ERYTHEMA [None]
  - HYPERTENSION [None]
  - TOTAL CHOLESTEROL/HDL RATIO ABNORMAL [None]
  - FLUSHING [None]
  - RASH [None]
